FAERS Safety Report 23952164 (Version 1)
Quarter: 2024Q2

REPORT INFORMATION
  Report Type: Spontaneous
  Country: US (occurrence: US)
  Receive Date: 20240607
  Receipt Date: 20240607
  Transmission Date: 20240715
  Serious: No
  Sender: FDA-Public Use
  Company Number: US-STI Pharma LLC-2157893

PATIENT
  Age: 62 Year
  Sex: Male

DRUGS (3)
  1. ETHAMBUTOL HYDROCHLORIDE [Suspect]
     Active Substance: ETHAMBUTOL HYDROCHLORIDE
  2. ZITHROMAX [Concomitant]
     Active Substance: AZITHROMYCIN DIHYDRATE
  3. RIFAMPIN [Concomitant]
     Active Substance: RIFAMPIN

REACTIONS (1)
  - Disease progression [Unknown]
